FAERS Safety Report 4552342-7 (Version None)
Quarter: 2005Q1

REPORT INFORMATION
  Report Type: 
  Country: None (occurrence: None)
  Receive Date: 20050114
  Receipt Date: 20040212
  Transmission Date: 20050727
  Serious: No
  Sender: FDA-Public Use
  Company Number: US-GLAXOSMITHKLINE-A0497868A

PATIENT
  Age: 18 Year
  Sex: Female

DRUGS (3)
  1. IMITREX [Suspect]
     Indication: ILL-DEFINED DISORDER
     Dates: start: 20040201
  2. TYLENOL [Concomitant]
     Indication: ILL-DEFINED DISORDER
  3. ADVIL [Concomitant]
     Indication: ILL-DEFINED DISORDER

REACTIONS (1)
  - DRUG INEFFECTIVE [None]
